FAERS Safety Report 6613301-3 (Version None)
Quarter: 2010Q1

REPORT INFORMATION
  Report Type: 
  Country: None (occurrence: None)
  Receive Date: 20100304
  Receipt Date: 20100219
  Transmission Date: 20100710
  Serious: Yes (Other)
  Sender: FDA-Public Use
  Company Number: PHEH2009US05751

PATIENT
  Sex: Female

DRUGS (20)
  1. COMBIPATCH [Suspect]
     Indication: HORMONE REPLACEMENT THERAPY
     Dosage: UNK
     Route: 062
     Dates: start: 19870101, end: 20070101
  2. ESTRADIOL [Suspect]
     Indication: HORMONE REPLACEMENT THERAPY
     Dosage: UNK
     Dates: start: 19870101, end: 20070101
  3. ESTRATEST [Suspect]
     Indication: HORMONE REPLACEMENT THERAPY
     Dosage: UNK
     Dates: start: 19870101, end: 20070101
  4. PROVERA [Suspect]
     Indication: HORMONE REPLACEMENT THERAPY
     Dosage: UNK
     Dates: start: 19870101, end: 20040923
  5. CLIMARA PRO [Suspect]
     Indication: HORMONE REPLACEMENT THERAPY
     Dosage: UNK
     Dates: start: 19870101, end: 20070101
  6. MEDROXYPROGESTERONE [Suspect]
     Indication: HORMONE REPLACEMENT THERAPY
     Dosage: UNK
     Dates: start: 19870101, end: 20070101
  7. PREVACID [Concomitant]
  8. CARAFATE [Concomitant]
  9. CARDIZEM [Concomitant]
  10. INDERAL [Concomitant]
  11. OXYCODONE HCL [Concomitant]
  12. BABY ASPIRIN [Concomitant]
  13. PROMETHAZINE [Concomitant]
  14. ATIVAN [Concomitant]
  15. ACYCLOVIR [Concomitant]
  16. SOMA [Concomitant]
  17. ULTRAM [Concomitant]
  18. COUMADIN [Concomitant]
  19. KLONOPIN [Concomitant]
  20. DYAZIDE [Concomitant]

REACTIONS (36)
  - ANXIETY [None]
  - ARTHRALGIA [None]
  - ASTHENIA [None]
  - BALANCE DISORDER [None]
  - BLOOD PRESSURE INCREASED [None]
  - BREAST CANCER [None]
  - BREAST RECONSTRUCTION [None]
  - DEPRESSION [None]
  - ENTEROCOLITIS [None]
  - EPSTEIN-BARR VIRAEMIA [None]
  - FATIGUE [None]
  - FIBROMYALGIA [None]
  - GASTROINTESTINAL HAEMORRHAGE [None]
  - HEADACHE [None]
  - HERPES VIRUS INFECTION [None]
  - INJURY [None]
  - KNEE OPERATION [None]
  - LYMPHADENECTOMY [None]
  - MASTECTOMY [None]
  - MENIERE'S DISEASE [None]
  - MIGRAINE [None]
  - MUSCLE STRAIN [None]
  - MUSCULOSKELETAL PAIN [None]
  - MYALGIA [None]
  - NON-HODGKIN'S LYMPHOMA [None]
  - OESOPHAGEAL SPASM [None]
  - PEPTIC ULCER [None]
  - POST POLIO SYNDROME [None]
  - PROCTALGIA [None]
  - REPETITIVE STRAIN INJURY [None]
  - SPINAL OSTEOARTHRITIS [None]
  - SYNOVIAL CYST [None]
  - TRANSIENT ISCHAEMIC ATTACK [None]
  - TREMOR [None]
  - UPPER RESPIRATORY TRACT INFECTION [None]
  - WEIGHT DECREASED [None]
